FAERS Safety Report 5567675-5 (Version None)
Quarter: 2007Q4

REPORT INFORMATION
  Report Type: 
  Country: None (occurrence: None)
  Receive Date: 20071214
  Receipt Date: 20071126
  Transmission Date: 20080405
  Serious: Yes (Hospitalization)
  Sender: FDA-Public Use
  Company Number: 2007001896

PATIENT
  Age: 30 Year
  Sex: Female

DRUGS (8)
  1. ERLOTINIB(TABLET) [Suspect]
     Indication: ANAPLASTIC ASTROCYTOMA
     Dosage: (200 MG, QD), ORAL
     Route: 048
     Dates: start: 20070620
  2. BEVACIZUMAB (INJECTION FOR INFUSION) [Suspect]
     Indication: ANAPLASTIC ASTROCYTOMA
     Dosage: 10 MG/KG (10 MG/KG, Q3W), INTRAVENOUS
     Route: 042
     Dates: start: 20070620
  3. KEPPRA [Concomitant]
  4. MINOCYCLINE HCL [Concomitant]
  5. FLAGYL [Concomitant]
  6. PROTONIX [Concomitant]
  7. LOTREL [Concomitant]
  8. POTASSIUM CHLORIDE [Concomitant]

REACTIONS (4)
  - BLOOD CULTURE POSITIVE [None]
  - CATHETER RELATED INFECTION [None]
  - CLOSTRIDIUM DIFFICILE COLITIS [None]
  - STAPHYLOCOCCAL INFECTION [None]
